FAERS Safety Report 9278864 (Version 1)
Quarter: 2013Q2

REPORT INFORMATION
  Report Type: Spontaneous
  Country: US (occurrence: None)
  Receive Date: 20130506
  Receipt Date: 20130506
  Transmission Date: 20140414
  Serious: Yes (Life-Threatening)
  Sender: FDA-Public Use
  Company Number: None

PATIENT
  Age: 74 Year
  Sex: Male
  Weight: 128 kg

DRUGS (1)
  1. CIPROFLOXACIN [Suspect]
     Route: 042
     Dates: start: 20130418, end: 20130422

REACTIONS (11)
  - Electrocardiogram QT prolonged [None]
  - Ventricular extrasystoles [None]
  - Pyrexia [None]
  - Night sweats [None]
  - Intestinal perforation [None]
  - International normalised ratio increased [None]
  - Unresponsive to stimuli [None]
  - Cardio-respiratory arrest [None]
  - Ventricular fibrillation [None]
  - Pulse absent [None]
  - Ventricular tachycardia [None]
